FAERS Safety Report 4451154-2 (Version None)
Quarter: 2004Q3

REPORT INFORMATION
  Report Type: 
  Country: None (occurrence: None)
  Receive Date: 20040916
  Receipt Date: 20040908
  Transmission Date: 20050211
  Serious: Yes (Death)
  Sender: FDA-Public Use
  Company Number: 200418977GDDC

PATIENT
  Age: 70 Year
  Sex: Male

DRUGS (5)
  1. ENOXAPARIN SODIUM [Suspect]
     Route: 040
     Dates: start: 20040823, end: 20040823
  2. NITROGLYCERIN [Concomitant]
     Indication: ARTERIOSPASM CORONARY
     Route: 042
     Dates: start: 20040823, end: 20040823
  3. METOCLOPRAMIDE [Concomitant]
     Indication: NAUSEA
     Route: 042
     Dates: start: 20040823, end: 20040823
  4. ASPIRIN [Concomitant]
     Route: 048
  5. CAPTOPRIL [Concomitant]
     Route: 048

REACTIONS (4)
  - CORONARY ARTERY DISEASE [None]
  - CORONARY ARTERY REOCCLUSION [None]
  - MYOCARDIAL INFARCTION [None]
  - PULMONARY OEDEMA [None]
